FAERS Safety Report 25709820 (Version 1)
Quarter: 2025Q3

REPORT INFORMATION
  Report Type: Report from Study
  Country: US (occurrence: US)
  Receive Date: 20250821
  Receipt Date: 20250821
  Transmission Date: 20251020
  Serious: No
  Sender: SUNOVION
  Company Number: US-SUMITOMO PHARMA SWITZERLAND GMBH-2025SPA010466

PATIENT
  Age: 66 Year
  Sex: Male

DRUGS (26)
  1. ORGOVYX [Suspect]
     Active Substance: RELUGOLIX
     Indication: Rectal cancer
     Route: 048
     Dates: start: 20250808, end: 20250808
  2. ORGOVYX [Suspect]
     Active Substance: RELUGOLIX
     Route: 048
  3. ACETAMINOPHEN [Concomitant]
     Active Substance: ACETAMINOPHEN
  4. ADVAIR HFA [Concomitant]
     Active Substance: FLUTICASONE PROPIONATE\SALMETEROL XINAFOATE
  5. ASPIRIN [Concomitant]
     Active Substance: ASPIRIN
  6. ATORVASTATIN [Concomitant]
     Active Substance: ATORVASTATIN
  7. BUMETANIDE [Concomitant]
     Active Substance: BUMETANIDE
  8. BYSTOLIC [Concomitant]
     Active Substance: NEBIVOLOL HYDROCHLORIDE
  9. DICLOFENAC SODIUM [Concomitant]
     Active Substance: DICLOFENAC SODIUM
  10. CYANOCOBALAMIN [Concomitant]
     Active Substance: CYANOCOBALAMIN
  11. CYCLOBENZAPRINE [Concomitant]
     Active Substance: CYCLOBENZAPRINE
  12. DOCUSATE [Concomitant]
     Active Substance: DOCUSATE
  13. ESCITALOPRAM [Concomitant]
     Active Substance: ESCITALOPRAM OXALATE
  14. FAMOTIDINE [Concomitant]
     Active Substance: FAMOTIDINE
  15. GABAPENTIN [Concomitant]
     Active Substance: GABAPENTIN
  16. GUAIFENESIN [Concomitant]
     Active Substance: GUAIFENESIN
  17. LISINOPRIL [Concomitant]
     Active Substance: LISINOPRIL
  18. LOPERAMIDE [Concomitant]
     Active Substance: LOPERAMIDE
  19. MAALOX ANTACID [Concomitant]
     Active Substance: ALUMINUM HYDROXIDE\DIMETHICONE\MAGNESIUM HYDROXIDE
  20. MAGNESIUM [Concomitant]
     Active Substance: MAGNESIUM
  21. MOUNJARO [Concomitant]
     Active Substance: TIRZEPATIDE
  22. ONDANSETRON [Concomitant]
     Active Substance: ONDANSETRON
  23. PROCHLORPERAZINE [Concomitant]
     Active Substance: PROCHLORPERAZINE
  24. SPIRONOLACTONE [Concomitant]
     Active Substance: SPIRONOLACTONE
  25. TRAMADOL [Concomitant]
     Active Substance: TRAMADOL
  26. TRESIBA [Concomitant]
     Active Substance: INSULIN DEGLUDEC

REACTIONS (2)
  - Fatigue [Unknown]
  - Off label use [Unknown]
